FAERS Safety Report 10465028 (Version 1)
Quarter: 2014Q3

REPORT INFORMATION
  Report Type: Spontaneous
  Country: IT (occurrence: IT)
  Receive Date: 20140919
  Receipt Date: 20140919
  Transmission Date: 20150326
  Serious: Yes (Other)
  Sender: FDA-Public Use
  Company Number: IT-GLAXOSMITHKLINE-B1035095A

PATIENT
  Sex: Male

DRUGS (2)
  1. ANTI-PARKINSON^S DISEASE MEDICATION [Concomitant]
  2. VOTRIENT [Suspect]
     Active Substance: PAZOPANIB HYDROCHLORIDE
     Indication: RENAL CELL CARCINOMA
     Dosage: 800MG PER DAY
     Route: 065

REACTIONS (3)
  - Akinesia [Recovered/Resolved]
  - Muscle rigidity [Recovered/Resolved]
  - Immobile [Recovered/Resolved]
